FAERS Safety Report 9396020 (Version 1)
Quarter: 2013Q3

REPORT INFORMATION
  Report Type: Spontaneous
  Country: US (occurrence: US)
  Receive Date: 20130711
  Receipt Date: 20130711
  Transmission Date: 20140515
  Serious: No
  Sender: FDA-Public Use
  Company Number: US-PFIZER INC-2013204092

PATIENT
  Age: 85 Year
  Sex: Female
  Weight: 81.63 kg

DRUGS (5)
  1. ACCUPRIL [Suspect]
     Indication: HYPERTENSION
     Dosage: 40 MG, 1X/DAY
     Route: 048
     Dates: start: 2010
  2. QUINAPRIL HCL [Suspect]
     Indication: HYPERTENSION
     Dosage: UNK
     Dates: start: 2011, end: 2012
  3. CARVEDILOL [Concomitant]
     Indication: HYPERTENSION
     Dosage: 25 MG, UNK
  4. DOXAZOSIN [Concomitant]
     Dosage: 4 MG, UNK
  5. INDAPAMIDE [Concomitant]
     Dosage: 1.25 MG, AS NEEDED

REACTIONS (5)
  - Dizziness [Unknown]
  - Drug intolerance [Unknown]
  - Stress [Not Recovered/Not Resolved]
  - Nervousness [Not Recovered/Not Resolved]
  - Thinking abnormal [Not Recovered/Not Resolved]
